FAERS Safety Report 24217467 (Version 3)
Quarter: 2024Q3

REPORT INFORMATION
  Report Type: Spontaneous
  Country: JP (occurrence: JP)
  Receive Date: 20240816
  Receipt Date: 20240827
  Transmission Date: 20241017
  Serious: Yes (Hospitalization)
  Sender: SANOFI AVENTIS
  Company Number: None

PATIENT
  Age: 73 Year
  Sex: Female
  Weight: 57 kg

DRUGS (11)
  1. RIFAMPIN [Interacting]
     Active Substance: RIFAMPIN
     Indication: Atypical mycobacterial infection
     Dosage: 600 MG, QD, (BEFORE BREAKFAST)
     Route: 048
  2. RIFAMPIN [Interacting]
     Active Substance: RIFAMPIN
     Dosage: 600 MG, QD, (BEFORE BREAKFAST)
  3. RIFAMPIN [Interacting]
     Active Substance: RIFAMPIN
     Dosage: UNK (BEFORE SLEEP)
  4. CLARITHROMYCIN [Interacting]
     Active Substance: CLARITHROMYCIN
     Indication: Atypical mycobacterial infection
     Dosage: 800 MG, QD (TWICE A DAYBEFORE BREAKFAST AND DINNER )
     Route: 048
  5. CLARITHROMYCIN [Interacting]
     Active Substance: CLARITHROMYCIN
     Dosage: 400 MG, QD (BEFORE BREAKFAST)
  6. CLARITHROMYCIN [Interacting]
     Active Substance: CLARITHROMYCIN
     Dosage: 400 MG, HS (BEFORE SLEEP)
  7. CLARITHROMYCIN [Interacting]
     Active Substance: CLARITHROMYCIN
     Dosage: 400 MG, HS (AFTER BREAKFAST)
  8. ZOLPIDEM [Concomitant]
     Active Substance: ZOLPIDEM TARTRATE
     Indication: Insomnia
     Dosage: UNK
     Route: 048
  9. ETHAMBUTOL [Concomitant]
     Active Substance: ETHAMBUTOL HYDROCHLORIDE
     Indication: Atypical mycobacterial infection
     Dosage: 750 MG, QD (BEFORE BREAKFAST)
     Route: 048
  10. ETHAMBUTOL [Concomitant]
     Active Substance: ETHAMBUTOL HYDROCHLORIDE
     Dosage: 625 MG, QD (BEFORE BREAKFAST)
  11. ETHAMBUTOL [Concomitant]
     Active Substance: ETHAMBUTOL HYDROCHLORIDE
     Dosage: UNK (BEFORE SLEEP)

REACTIONS (6)
  - Postprandial hypoglycaemia [Recovered/Resolved]
  - Malaise [Recovered/Resolved]
  - Tremor [Recovered/Resolved]
  - Hyperhidrosis [Recovered/Resolved]
  - Drug interaction [Recovered/Resolved]
  - Hyperinsulinaemia [Recovered/Resolved]
